FAERS Safety Report 5062143-1 (Version None)
Quarter: 2006Q3

REPORT INFORMATION
  Report Type: 
  Country: None (occurrence: None)
  Receive Date: 20060726
  Receipt Date: 20060718
  Transmission Date: 20061208
  Serious: Yes (Other)
  Sender: FDA-Public Use
  Company Number: PHBS2006BR10835

PATIENT
  Age: 27 Year
  Sex: Male
  Weight: 47 kg

DRUGS (1)
  1. TRILEPTAL [Suspect]
     Dosage: 300 MG, BID
     Route: 048
     Dates: start: 20060501

REACTIONS (6)
  - ABDOMINAL PAIN [None]
  - DEPRESSION [None]
  - DIZZINESS [None]
  - FEAR [None]
  - NAUSEA [None]
  - VOMITING [None]
